FAERS Safety Report 24557613 (Version 3)
Quarter: 2025Q4

REPORT INFORMATION
  Report Type: Spontaneous
  Country: EU (occurrence: EU)
  Receive Date: 20241028
  Receipt Date: 20251024
  Transmission Date: 20260117
  Serious: Yes (Hospitalization)
  Sender: TEVA
  Company Number: None

PATIENT
  Age: 78 Year
  Sex: Female
  Weight: 66 kg

DRUGS (19)
  1. LANSOPRAZOLE [Suspect]
     Active Substance: LANSOPRAZOLE
     Indication: Product used for unknown indication
     Route: 048
     Dates: start: 20240823
  2. ORITAVANCIN [Suspect]
     Active Substance: ORITAVANCIN
     Indication: Endocarditis
     Dosage: POWDER FOR SOLUTION FOR INFUSION
     Route: 042
     Dates: start: 20240916, end: 20240916
  3. ORITAVANCIN [Suspect]
     Active Substance: ORITAVANCIN
     Indication: Endocarditis
     Dosage: POWDER FOR SOLUTION FOR INFUSION
     Route: 042
     Dates: start: 20240909, end: 20240909
  4. MORPHINE SULFATE [Suspect]
     Active Substance: MORPHINE SULFATE
     Indication: Pain
     Dosage: TIME INTERVAL: AS NECESSARY
     Route: 048
     Dates: start: 20240908, end: 20240913
  5. LORAZEPAM [Concomitant]
     Active Substance: LORAZEPAM
     Indication: Product used for unknown indication
     Route: 048
  6. FUROSEMIDE [Concomitant]
     Active Substance: FUROSEMIDE
     Indication: Product used for unknown indication
     Route: 048
  7. IRON SUCROSE [Suspect]
     Active Substance: IRON SUCROSE
     Indication: Iron deficiency anaemia
     Route: 042
     Dates: start: 20240902, end: 20240906
  8. POTASSIUM CHLORIDE [Concomitant]
     Active Substance: POTASSIUM CHLORIDE
     Indication: Hypokalaemia
     Route: 048
     Dates: start: 20240826
  9. CETIRIZINE [Suspect]
     Active Substance: CETIRIZINE HYDROCHLORIDE
     Indication: Pruritus
     Dosage: CETIRIZINE HYDROCHLORIDE
     Route: 048
     Dates: start: 20240909
  10. OXAZEPAM [Suspect]
     Active Substance: OXAZEPAM
     Indication: Product used for unknown indication
     Route: 048
     Dates: start: 20240829, end: 20240923
  11. FOLIC ACID [Concomitant]
     Active Substance: FOLIC ACID
     Indication: Anaemia folate deficiency
     Route: 048
     Dates: start: 20240824
  12. DAPTOMYCIN [Suspect]
     Active Substance: DAPTOMYCIN
     Indication: Product used for unknown indication
     Route: 042
     Dates: start: 20240908, end: 20240908
  13. DAPTOMYCIN [Suspect]
     Active Substance: DAPTOMYCIN
     Indication: Product used for unknown indication
     Route: 042
     Dates: start: 20240814, end: 20240815
  14. DAPTOMYCIN [Suspect]
     Active Substance: DAPTOMYCIN
     Indication: Product used for unknown indication
     Route: 042
     Dates: start: 20240922
  15. ACETYLLEUCINE [Concomitant]
     Active Substance: ACETYLLEUCINE
     Indication: Product used for unknown indication
     Route: 048
  16. EPOETIN ZETA [Suspect]
     Active Substance: ERYTHROPOIETIN
     Indication: Iron deficiency anaemia
     Dosage: TIME INTERVAL: TOTAL: MAMMAL/HAMSTER/CHO CELLS
     Route: 042
     Dates: start: 20240910, end: 20240910
  17. SPIRONOLACTONE [Concomitant]
     Active Substance: SPIRONOLACTONE
     Indication: Product used for unknown indication
     Route: 048
     Dates: start: 20240912
  18. SKENAN [Suspect]
     Active Substance: MORPHINE SULFATE
     Indication: Pain
     Dosage: PROLONGED RELEASE MICROGRANULES IN CAPSULE
     Route: 048
     Dates: start: 20240908, end: 20240913
  19. ENOXAPARIN [Suspect]
     Active Substance: ENOXAPARIN
     Indication: Thrombosis prophylaxis
     Dosage: ENOXAPARIN SODIUM (MAMMAL/PIG/INTESTINAL MUCOSA)
     Route: 058
     Dates: start: 20240905

REACTIONS (1)
  - Agranulocytosis [Recovered/Resolved]

NARRATIVE: CASE EVENT DATE: 20240918
